FAERS Safety Report 13625990 (Version 1)
Quarter: 2017Q2

REPORT INFORMATION
  Report Type: Spontaneous
  Country: US (occurrence: US)
  Receive Date: 20170608
  Receipt Date: 20170608
  Transmission Date: 20170830
  Serious: Yes (Other)
  Sender: FDA-Public Use
  Company Number: US-EMD SERONO-8161650

PATIENT
  Sex: Male

DRUGS (1)
  1. SAIZEN [Suspect]
     Active Substance: SOMATROPIN
     Indication: HYPOPITUITARISM
     Route: 058
     Dates: start: 20161003

REACTIONS (3)
  - Hypersensitivity [Not Recovered/Not Resolved]
  - Nasal dryness [Not Recovered/Not Resolved]
  - Haemorrhage [Not Recovered/Not Resolved]
